FAERS Safety Report 9587366 (Version 1)
Quarter: 2013Q4

REPORT INFORMATION
  Report Type: Spontaneous
  Country: US (occurrence: None)
  Receive Date: 20131003
  Receipt Date: 20131003
  Transmission Date: 20140711
  Serious: Yes (Other)
  Sender: FDA-Public Use
  Company Number: None

PATIENT
  Age: 57 Year
  Sex: Female
  Weight: 54.43 kg

DRUGS (1)
  1. FENTANYL PATCH [Suspect]
     Indication: PAIN
     Dosage: 1 PATCH EVERY THREE DAYS APPLIED AS MEDICATED PATCH TO SKIN
     Route: 061
     Dates: start: 20130702, end: 20130904

REACTIONS (9)
  - Hypotension [None]
  - Palpitations [None]
  - Heart rate increased [None]
  - Decreased appetite [None]
  - Headache [None]
  - Nausea [None]
  - Memory impairment [None]
  - Dyspnoea [None]
  - Dizziness postural [None]
